FAERS Safety Report 9223048 (Version 1)
Quarter: 2013Q1

REPORT INFORMATION
  Report Type: Spontaneous
  Country: US (occurrence: None)
  Receive Date: 20120914
  Receipt Date: 20120914
  Transmission Date: 20140127
  Serious: Yes (Other)
  Sender: FDA-Public Use
  Company Number: JPI-P-019824

PATIENT
  Age: 29 Year
  Sex: Male
  Weight: 88.45 kg

DRUGS (10)
  1. XYREM (500 MILLIGRAM/MILLILITERS, SOLUTION) (SODIUM OXYBATE) [Suspect]
     Indication: NARCOLEPSY
     Route: 048
     Dates: start: 20070226
  2. MODAFINIL [Concomitant]
  3. CELECOXIB [Concomitant]
  4. DEXTROAMPHETSAMINE SULFATE [Concomitant]
  5. SOMATROPIN [Concomitant]
  6. VALTREX [Concomitant]
  7. HYDROCODONE/APAP [Concomitant]
  8. LANSOPRAZOLE [Concomitant]
  9. VENLAFAXINE HYDROCHLORIDE [Concomitant]
  10. BUPRENORPHINE [Concomitant]

REACTIONS (1)
  - Lung infection [None]
